FAERS Safety Report 8329105 (Version 2)
Quarter: 2012Q4

REPORT INFORMATION
  Report Type: Report from Study
  Country: FR (occurrence: FR)
  Receive Date: 20120110
  Receipt Date: 20121005
  Transmission Date: 20130627
  Serious: Yes (Hospitalization, Other)
  Sender: FDA-Public Use
  Company Number: FR-ROCHE-1006286

PATIENT
  Age: 47 Year
  Sex: Male
  Weight: 67 kg

DRUGS (5)
  1. PEGASYS [Suspect]
     Indication: PRODUCT USED FOR UNKNOWN INDICATION
     Route: 065
     Dates: start: 20110224, end: 20110818
  2. COPEGUS [Suspect]
     Indication: PRODUCT USED FOR UNKNOWN INDICATION
     Route: 065
     Dates: start: 20110224, end: 20110625
  3. INEXIUM [Concomitant]
     Route: 065
     Dates: start: 2010
  4. GUANADREL [Concomitant]
     Indication: EPILEPSY
     Route: 065
     Dates: start: 1980
  5. SYMBICORT [Concomitant]
     Route: 065
     Dates: start: 2010

REACTIONS (2)
  - Pneumonia pneumococcal [Recovered/Resolved]
  - Sigmoiditis [Recovered/Resolved]
